FAERS Safety Report 24884219 (Version 3)
Quarter: 2025Q1

REPORT INFORMATION
  Report Type: Report from Study
  Country: US (occurrence: US)
  Receive Date: 20250124
  Receipt Date: 20250306
  Transmission Date: 20250409
  Serious: Yes (Hospitalization, Other)
  Sender: ALEXION PHARMACEUTICALS
  Company Number: US-AstraZeneca-CH-00786955A

PATIENT

DRUGS (1)
  1. ULTOMIRIS [Suspect]
     Active Substance: RAVULIZUMAB-CWVZ
     Indication: Myasthenia gravis
     Route: 065

REACTIONS (11)
  - Pneumonia [Unknown]
  - Deafness [Unknown]
  - Sepsis [Unknown]
  - Influenza [Unknown]
  - COVID-19 [Unknown]
  - Respiratory syncytial virus infection [Unknown]
  - Aphonia [Unknown]
  - Throat irritation [Unknown]
  - Gait inability [Unknown]
  - Weight decreased [Unknown]
  - Fatigue [Unknown]
